FAERS Safety Report 16527286 (Version 1)
Quarter: 2019Q3

REPORT INFORMATION
  Report Type: Spontaneous
  Country: JP (occurrence: JP)
  Receive Date: 20190704
  Receipt Date: 20190704
  Transmission Date: 20191004
  Serious: Yes (Death, Other)
  Sender: FDA-Public Use
  Company Number: JP-ACTELION-A-CH2019-192347

PATIENT

DRUGS (6)
  1. BERAPROST [Concomitant]
     Active Substance: BERAPROST
  2. TADALAFIL. [Concomitant]
     Active Substance: TADALAFIL
  3. SILDENAFIL. [Concomitant]
     Active Substance: SILDENAFIL
  4. AMBRISENTAN [Concomitant]
     Active Substance: AMBRISENTAN
  5. BOSENTAN. [Suspect]
     Active Substance: BOSENTAN
     Indication: PULMONARY ARTERIAL HYPERTENSION
     Route: 048
  6. EPOPROSTENOL SODIUM. [Suspect]
     Active Substance: EPOPROSTENOL SODIUM
     Indication: PULMONARY ARTERIAL HYPERTENSION
     Route: 042

REACTIONS (4)
  - Lung transplant [Unknown]
  - Haemoptysis [Fatal]
  - Cardiac failure [Fatal]
  - Sudden death [Fatal]
